FAERS Safety Report 11553165 (Version 2)
Quarter: 2015Q4

REPORT INFORMATION
  Report Type: Report from Study
  Country: BR (occurrence: BR)
  Receive Date: 20150925
  Receipt Date: 20151002
  Transmission Date: 20160304
  Serious: Yes (Life-Threatening)
  Sender: FDA-Public Use
  Company Number: BR-GLAXOSMITHKLINE INC.-BR2015GSK135002

PATIENT
  Sex: Female
  Weight: 57 kg

DRUGS (6)
  1. FLUTICASONE PROPIONATE+SALMETEROL XINAFOATE [Suspect]
     Active Substance: FLUTICASONE PROPIONATE\SALMETEROL XINAFOATE
     Indication: ASTHMA
     Dosage: UNK
     Route: 055
     Dates: start: 20150602
  2. FLUIBRON A [Concomitant]
     Indication: PRODUCT USED FOR UNKNOWN INDICATION
     Dosage: UNK
     Route: 048
  3. CLENIL (BECLOMETASONE DIPROPIONATE) [Concomitant]
     Active Substance: BECLOMETHASONE DIPROPIONATE
     Indication: ASTHMA
     Dosage: UNK
     Route: 048
  4. DESALEX [Concomitant]
     Active Substance: DESLORATADINE
     Indication: ASTHMA
     Dosage: 1 DF, QD
  5. VICTAN [Concomitant]
     Active Substance: ETHYL LOFLAZEPATE
     Indication: ASTHMA
     Dosage: 1 DF, QD
     Route: 048
  6. SINGULAIR (MONTELUKAST SODIUM) [Concomitant]
     Indication: ASTHMA
     Dosage: UNK
     Route: 048

REACTIONS (3)
  - Swelling [Unknown]
  - Overdose [Unknown]
  - Drug ineffective [Unknown]
